FAERS Safety Report 5244238-2 (Version None)
Quarter: 2007Q1

REPORT INFORMATION
  Report Type: 
  Country: None (occurrence: None)
  Receive Date: 20061201
  Receipt Date: 20060815
  Transmission Date: 20070707
  Serious: No
  Sender: FDA-Public Use
  Company Number: 2006PV019492

PATIENT
  Age: 50 Year
  Sex: Female
  Weight: 105.2345 kg

DRUGS (6)
  1. BYETTA [Suspect]
     Indication: DIABETES MELLITUS NON-INSULIN-DEPENDENT
     Dosage: 5 MCG;BID;SC
     Route: 058
     Dates: start: 20060701
  2. AMARYL [Concomitant]
  3. ACTOS /USA/ [Concomitant]
  4. HYDROCHLOROTHIAZIDE [Concomitant]
  5. LEVOTHYROXINE SODIUM [Concomitant]
  6. FUROSEMIDE [Concomitant]

REACTIONS (6)
  - ERYTHEMA [None]
  - HYPERSENSITIVITY [None]
  - NAUSEA [None]
  - PAIN IN EXTREMITY [None]
  - PRURITUS [None]
  - SOMNOLENCE [None]
